FAERS Safety Report 8525780-5 (Version None)
Quarter: 2012Q3

REPORT INFORMATION
  Report Type: 
  Country: None (occurrence: None)
  Receive Date: 20120720
  Receipt Date: 20120717
  Transmission Date: 20120928
  Serious: No
  Sender: FDA-Public Use
  Company Number: US-BAYER-2012-072606

PATIENT
  Sex: Male

DRUGS (1)
  1. NORPLANT [Suspect]

REACTIONS (2)
  - ASTHMA [None]
  - FOETAL EXPOSURE DURING PREGNANCY [None]
